FAERS Safety Report 9210347 (Version 2)
Quarter: 2013Q2

REPORT INFORMATION
  Report Type: Spontaneous
  Country: BR (occurrence: BR)
  Receive Date: 20130404
  Receipt Date: 20130419
  Transmission Date: 20140414
  Serious: Yes (Other)
  Sender: FDA-Public Use
  Company Number: PHHY2013BR031663

PATIENT
  Age: 24 Year
  Sex: Male

DRUGS (4)
  1. RITALINA [Suspect]
     Indication: NARCOLEPSY
     Dosage: UNK UKN, UNK
     Route: 048
  2. RITALINA [Suspect]
     Indication: ATTENTION DEFICIT/HYPERACTIVITY DISORDER
  3. RITALINA [Suspect]
     Indication: SOMNOLENCE
  4. STAVIGILE [Concomitant]

REACTIONS (10)
  - Hypotonia [Unknown]
  - Upper limb fracture [Unknown]
  - Hand fracture [Unknown]
  - Wrist fracture [Unknown]
  - Accident [Unknown]
  - Drug intolerance [Unknown]
  - Sleep disorder [Unknown]
  - Disturbance in attention [Unknown]
  - Hypersensitivity [Unknown]
  - Somnolence [Unknown]
